FAERS Safety Report 15425288 (Version 1)
Quarter: 2018Q3

REPORT INFORMATION
  Report Type: Report from Study
  Country: US (occurrence: US)
  Receive Date: 20180925
  Receipt Date: 20180925
  Transmission Date: 20181010
  Serious: Yes (Other)
  Sender: FDA-Public Use
  Company Number: PHEH2018US039046

PATIENT
  Age: 63 Year
  Sex: Male

DRUGS (1)
  1. ENTRESTO [Suspect]
     Active Substance: SACUBITRIL\VALSARTAN
     Indication: PRODUCT USED FOR UNKNOWN INDICATION
     Route: 065

REACTIONS (11)
  - Gait inability [Unknown]
  - Pain [Unknown]
  - Neuralgia [Unknown]
  - Micturition frequency decreased [Unknown]
  - Feeling abnormal [Unknown]
  - Chest pain [Unknown]
  - Dizziness [Unknown]
  - Impaired healing [Unknown]
  - Foot fracture [Unknown]
  - Diarrhoea [Unknown]
  - Dehydration [Unknown]
